FAERS Safety Report 14857374 (Version 1)
Quarter: 2018Q2

REPORT INFORMATION
  Report Type: Spontaneous
  Country: US (occurrence: US)
  Receive Date: 20180508
  Receipt Date: 20180508
  Transmission Date: 20180711
  Serious: No
  Sender: FDA-Public Use
  Company Number: US-RADIUS HEALTH INC.-2018US000363

PATIENT
  Sex: Female
  Weight: 57.14 kg

DRUGS (1)
  1. TYMLOS [Suspect]
     Active Substance: ABALOPARATIDE
     Indication: OSTEOPOROSIS POSTMENOPAUSAL
     Dosage: 80 MCG QD
     Route: 058
     Dates: start: 201802

REACTIONS (6)
  - Abdominal pain [Unknown]
  - Dizziness [Unknown]
  - Chills [Unknown]
  - Fatigue [Unknown]
  - Myalgia [Unknown]
  - Adverse event [Unknown]
